FAERS Safety Report 6582492-5 (Version None)
Quarter: 2010Q1

REPORT INFORMATION
  Report Type: 
  Country: None (occurrence: None)
  Receive Date: 20100216
  Receipt Date: 20100211
  Transmission Date: 20100710
  Serious: Yes (Other)
  Sender: FDA-Public Use
  Company Number: PHHY2010AU07882

PATIENT
  Sex: Female

DRUGS (1)
  1. FAMVIR [Suspect]
     Indication: HERPES VIRUS INFECTION
     Dosage: 250 MG, BID
     Route: 048

REACTIONS (5)
  - COUGH [None]
  - PHARYNGEAL OEDEMA [None]
  - THROAT IRRITATION [None]
  - VOMITING [None]
  - WHEEZING [None]
